FAERS Safety Report 8448452-4 (Version None)
Quarter: 2012Q2

REPORT INFORMATION
  Report Type: 
  Country: None (occurrence: None)
  Receive Date: 20120619
  Receipt Date: 20120607
  Transmission Date: 20120825
  Serious: Yes (Other)
  Sender: FDA-Public Use
  Company Number: CA-ROCHE-1076493

PATIENT
  Sex: Male

DRUGS (10)
  1. VEMURAFENIB [Suspect]
     Indication: METASTATIC MALIGNANT MELANOMA
     Route: 048
     Dates: start: 20120501
  2. FLAXSEED OIL [Concomitant]
  3. VITAMIN A [Concomitant]
  4. LUMIGAN [Concomitant]
     Dosage: 0.1 % PV
     Route: 047
  5. OREGANO [Concomitant]
  6. OMEGA 3-6-9 [Concomitant]
  7. MELATONIN [Concomitant]
  8. VITAMIN E [Concomitant]
  9. DEXAMETHASONE [Concomitant]
  10. GARLIC [Concomitant]

REACTIONS (3)
  - EYE SWELLING [None]
  - ACNE [None]
  - INTRAOCULAR PRESSURE INCREASED [None]
